FAERS Safety Report 5290844-9 (Version None)
Quarter: 2007Q2

REPORT INFORMATION
  Report Type: 
  Country: None (occurrence: None)
  Receive Date: 20070409
  Receipt Date: 20070328
  Transmission Date: 20071010
  Serious: Yes (Death, Life-Threatening, Other)
  Sender: FDA-Public Use
  Company Number: JP-PFIZER INC-2007004198

PATIENT
  Age: 16 Year
  Sex: Female

DRUGS (2)
  1. JZOLOFT [Suspect]
     Dosage: DAILY DOSE:50MG
     Route: 048
     Dates: start: 20060909, end: 20061001
  2. SOLANAX [Suspect]
     Dosage: DAILY DOSE:.8MG
     Route: 048

REACTIONS (2)
  - COMPLETED SUICIDE [None]
  - CONDITION AGGRAVATED [None]
